FAERS Safety Report 7330099-4 (Version None)
Quarter: 2011Q1

REPORT INFORMATION
  Report Type: 
  Country: None (occurrence: None)
  Receive Date: 20110303
  Receipt Date: 20110221
  Transmission Date: 20110831
  Serious: Yes (Other)
  Sender: FDA-Public Use
  Company Number: US-ELI_LILLY_AND_COMPANY-US201011001435

PATIENT
  Sex: Female

DRUGS (4)
  1. GLUCOSAMINE [Concomitant]
     Dosage: UNK, UNKNOWN
     Route: 065
  2. FORTEO [Suspect]
     Indication: OSTEOPOROSIS
     Dosage: 20 UG, DAILY (1/D)
     Dates: start: 20100601
  3. XALATAN [Concomitant]
     Indication: GLAUCOMA
     Dosage: UNK, UNKNOWN
     Route: 065
  4. MULTIVITAMIN [Concomitant]
     Dosage: UNK, UNKNOWN
     Route: 065

REACTIONS (4)
  - CATARACT [None]
  - GLAUCOMA [None]
  - NON-HODGKIN'S LYMPHOMA [None]
  - FATIGUE [None]
